FAERS Safety Report 7345015-9 (Version None)
Quarter: 2011Q1

REPORT INFORMATION
  Report Type: 
  Country: None (occurrence: None)
  Receive Date: 20110302
  Receipt Date: 20110222
  Transmission Date: 20110831
  Serious: Yes (Hospitalization)
  Sender: FDA-Public Use
  Company Number: 2011MA001768

PATIENT
  Age: 82 Year
  Sex: Female

DRUGS (7)
  1. MOVIPREP [Concomitant]
  2. FELBINAC [Concomitant]
  3. IRBESARTAN [Concomitant]
  4. SIMVASTATIN [Concomitant]
  5. IBUPROFEN [Suspect]
     Indication: PAIN
     Dosage: 400 MG;TID;PO
     Route: 048
     Dates: start: 20110209
  6. ACETAMINOPHEN AND CODEINE PHOSPHATE [Concomitant]
  7. METFORMIN [Concomitant]

REACTIONS (2)
  - DUODENAL ULCER [None]
  - INCORRECT DOSE ADMINISTERED [None]
